FAERS Safety Report 22052249 (Version 1)
Quarter: 2023Q1

REPORT INFORMATION
  Report Type: Spontaneous
  Country: FR (occurrence: FR)
  Receive Date: 20230302
  Receipt Date: 20230302
  Transmission Date: 20230417
  Serious: Yes (Hospitalization, Other)
  Sender: FDA-Public Use
  Company Number: FR-PIRAMAL CRITICAL CARE LIMITED-2023-PEL-000126

PATIENT

DRUGS (5)
  1. SEVOFLURANE [Suspect]
     Active Substance: SEVOFLURANE
     Indication: Endotracheal intubation
     Dosage: 1 DOSAGE FORM
     Dates: start: 20230130, end: 20230208
  2. PROPOFOL [Suspect]
     Active Substance: PROPOFOL
     Indication: Sedation
     Dosage: 1 DOSAGE FORM
     Route: 042
     Dates: start: 20230204
  3. ETOPOSIDE [Suspect]
     Active Substance: ETOPOSIDE
     Indication: Adenocarcinoma
     Dosage: J1, J2 + J3
     Route: 042
     Dates: start: 20230203, end: 20230205
  4. CARBOPLATIN [Suspect]
     Active Substance: CARBOPLATIN
     Indication: Adenocarcinoma
     Dosage: CURE OF 609 MG (J1) (CURE DE 609 MG (J1))
     Route: 042
     Dates: start: 20230203, end: 20230203
  5. REMIFENTANIL HYDROCHLORIDE [Suspect]
     Active Substance: REMIFENTANIL HYDROCHLORIDE
     Indication: Sedation
     Dosage: 1 DOSAGE FORM
     Route: 042
     Dates: start: 20230130

REACTIONS (2)
  - Rhabdomyolysis [Not Recovered/Not Resolved]
  - Blood creatine phosphokinase increased [Not Recovered/Not Resolved]

NARRATIVE: CASE EVENT DATE: 20230205
